FAERS Safety Report 8335811-3 (Version None)
Quarter: 2012Q2

REPORT INFORMATION
  Report Type: 
  Country: None (occurrence: None)
  Receive Date: 20120504
  Receipt Date: 20110128
  Transmission Date: 20120825
  Serious: Yes (Disabling, Other)
  Sender: FDA-Public Use
  Company Number: US-BAYER-2010-000431

PATIENT
  Age: 52 Year
  Sex: Female
  Weight: 58.957 kg

DRUGS (40)
  1. OMNISCAN [Suspect]
     Indication: NUCLEAR MAGNETIC RESONANCE IMAGING ABDOMINAL
     Dosage: UNK UNK, ONCE
     Dates: start: 19980601, end: 19980601
  2. OMNISCAN [Suspect]
     Indication: NUCLEAR MAGNETIC RESONANCE IMAGING THORACIC
     Dosage: 30 ML, ONCE
     Dates: start: 19990514, end: 19990514
  3. OMNISCAN [Suspect]
     Indication: ANGIOGRAM
     Dosage: UNK, ONCE
     Dates: start: 20010720, end: 20010720
  4. SIMVASTATIN [Concomitant]
     Indication: BLOOD CHOLESTEROL INCREASED
     Dosage: 40 MG, QD
     Route: 048
     Dates: start: 20080101
  5. COUMADIN [Concomitant]
     Indication: ANTICOAGULANT THERAPY
     Dosage: VARIES
     Dates: start: 20000101
  6. MAGNEVIST [Suspect]
     Indication: NUCLEAR MAGNETIC RESONANCE IMAGING THORACIC
     Dosage: 20 ML, ONCE
     Dates: start: 20030909, end: 20030909
  7. OMNISCAN [Suspect]
     Dosage: 0.15 MMOL/KG
     Route: 042
     Dates: start: 20000418, end: 20000418
  8. OMNISCAN [Suspect]
     Indication: VENOGRAM
     Dosage: 30 ML, ONCE
     Route: 042
     Dates: start: 20001019, end: 20001019
  9. OMNISCAN [Suspect]
     Dosage: 0.1 MMOL/KG, UNK
     Dates: start: 20031020, end: 20031020
  10. AVAPRO [Concomitant]
     Indication: HYPERTENSION
     Dosage: 150 MG, QD
     Route: 048
     Dates: start: 20070101, end: 20100101
  11. MAXIDEX [Concomitant]
     Dosage: UNK
     Dates: start: 20030101
  12. CLAFORAN [Concomitant]
     Indication: PRODUCT USED FOR UNKNOWN INDICATION
     Dosage: 1 G, BID
     Dates: start: 20030101
  13. OMNIPAQUE 140 [Concomitant]
     Indication: COMPUTERISED TOMOGRAM THORAX
     Dosage: UNK
     Dates: start: 19991105
  14. METOPROLOL TARTRATE [Concomitant]
     Indication: HYPERTENSION
     Dosage: 25 MG, QD
  15. ENALAPRIL MALEATE [Concomitant]
  16. CHLOROTHIAZIDE [Concomitant]
  17. FUROSEMIDE [Concomitant]
  18. MODURETIC 5-50 [Concomitant]
  19. OMNISCAN [Suspect]
     Dosage: 40 ML, ONCE
     Dates: start: 20011016, end: 20011016
  20. COZAAR [Concomitant]
     Indication: PRODUCT USED FOR UNKNOWN INDICATION
     Dosage: 40 MG DAILY
     Dates: start: 20030101
  21. LASIX [Concomitant]
  22. MAGNESIUM OXIDE [Concomitant]
  23. MAGNEVIST [Suspect]
     Indication: NUCLEAR MAGNETIC RESONANCE IMAGING ABDOMINAL
     Dosage: UNK
     Dates: start: 19980601, end: 19980601
  24. MAGNEVIST [Suspect]
     Dosage: UNK
     Dates: start: 20030925, end: 20030925
  25. OMNISCAN [Suspect]
     Dosage: 50 ML, ONCE
     Dates: start: 20030930, end: 20030930
  26. POTASSIUM CHLORIDE [Concomitant]
     Indication: ASTHENIA
  27. MAGNEVIST [Suspect]
     Indication: ANGIOGRAM
  28. BENADRYL [Concomitant]
  29. OMNISCAN [Suspect]
     Dosage: DAILY DOSE 40 ML
     Dates: start: 20021101, end: 20021101
  30. NIFEDIPINE [Concomitant]
     Indication: HYPERTENSION
     Dosage: 60 MG, QD
     Dates: start: 20080101
  31. SEVELAMER [Concomitant]
  32. OMNISCAN [Suspect]
     Dosage: 0.2MMOL/KG
     Route: 042
     Dates: start: 20030927, end: 20030927
  33. POTASSIUM CHLORIDE [Concomitant]
     Indication: MEDICAL DIET
     Dosage: 10 MG, BID
     Route: 048
  34. SPIRONOLACTONE [Concomitant]
     Indication: FLUID RETENTION
     Dosage: 25 MG, QD
  35. EPOGEN [Concomitant]
  36. OMNISCAN [Suspect]
     Dosage: 0.1MMOL/KG
     Dates: start: 20031003, end: 20031003
  37. IRON SUPPLEMENT [Concomitant]
  38. OMNIPAQUE 140 [Concomitant]
     Indication: COMPUTERISED TOMOGRAM ABDOMEN
     Dosage: 100 ML, UNK
     Dates: start: 20010201
  39. CLONIDINE [Concomitant]
  40. FLONASE [Concomitant]

REACTIONS (28)
  - NEPHROGENIC SYSTEMIC FIBROSIS [None]
  - SKIN DISORDER [None]
  - IMPAIRED SELF-CARE [None]
  - STRESS [None]
  - SOFT TISSUE DISORDER [None]
  - MOBILITY DECREASED [None]
  - ABASIA [None]
  - SCAR [None]
  - SKIN PLAQUE [None]
  - AMNESIA [None]
  - MUSCULOSKELETAL STIFFNESS [None]
  - SKIN HYPOPIGMENTATION [None]
  - UNEVALUABLE EVENT [None]
  - JOINT RANGE OF MOTION DECREASED [None]
  - ANXIETY [None]
  - SKIN HYPERPIGMENTATION [None]
  - EXTREMITY CONTRACTURE [None]
  - DYSPHONIA [None]
  - CALCIFICATION OF MUSCLE [None]
  - JOINT STIFFNESS [None]
  - PAIN [None]
  - MUSCLE FIBROSIS [None]
  - SKIN INDURATION [None]
  - SKIN DISCOLOURATION [None]
  - OEDEMA PERIPHERAL [None]
  - SKIN FIBROSIS [None]
  - MYOSCLEROSIS [None]
  - JOINT CONTRACTURE [None]
